FAERS Safety Report 7571894-6 (Version None)
Quarter: 2011Q2

REPORT INFORMATION
  Report Type: 
  Country: None (occurrence: None)
  Receive Date: 20110624
  Receipt Date: 20100804
  Transmission Date: 20111010
  Serious: No
  Sender: FDA-Public Use
  Company Number: A0874013A

PATIENT
  Age: 78 Year
  Sex: Male

DRUGS (2)
  1. PATANASE [Suspect]
     Route: 045
  2. VERAMYST [Suspect]
     Route: 045

REACTIONS (3)
  - ARTHRALGIA [None]
  - CONDITION AGGRAVATED [None]
  - MOVEMENT DISORDER [None]
